FAERS Safety Report 6389039-7 (Version None)
Quarter: 2009Q4

REPORT INFORMATION
  Report Type: 
  Country: None (occurrence: None)
  Receive Date: 20091001
  Receipt Date: 20090923
  Transmission Date: 20100525
  Serious: Yes (Hospitalization)
  Sender: FDA-Public Use
  Company Number: ADR32482009

PATIENT
  Age: 43 Year
  Sex: Male

DRUGS (3)
  1. SIMVASTATIN [Suspect]
  2. RAMIPRIL [Concomitant]
  3. FLUCONAZOLE [Concomitant]

REACTIONS (2)
  - DRUG INTERACTION [None]
  - RHABDOMYOLYSIS [None]
